FAERS Safety Report 7820652-3 (Version None)
Quarter: 2011Q4

REPORT INFORMATION
  Report Type: 
  Country: None (occurrence: None)
  Receive Date: 20111018
  Receipt Date: 20111003
  Transmission Date: 20120403
  Serious: Yes (Other)
  Sender: FDA-Public Use
  Company Number: JP-WATSON-2011-14803

PATIENT
  Age: 50 Year
  Sex: Female

DRUGS (4)
  1. CYCLOPHOSPHAMIDE [Suspect]
     Indication: BREAST CANCER METASTATIC
     Dosage: 500 MG/M2, UNK
  2. DOCETAXEL [Suspect]
     Indication: BREAST CANCER METASTATIC
     Dosage: 60 MG/M2, UNK
  3. EPIRUBICIN [Suspect]
     Indication: BREAST CANCER METASTATIC
     Dosage: 60 MG/M2, UNK
  4. FLUOROURACIL [Suspect]
     Indication: BREAST CANCER METASTATIC
     Dosage: 500 MG/M2, UNK
     Route: 065

REACTIONS (3)
  - FATIGUE [None]
  - TREATMENT FAILURE [None]
  - NEUTROPENIA [None]
